FAERS Safety Report 5121562-5 (Version None)
Quarter: 2006Q4

REPORT INFORMATION
  Report Type: 
  Country: None (occurrence: None)
  Receive Date: 20061006
  Receipt Date: 20060928
  Transmission Date: 20070319
  Serious: Yes (Hospitalization)
  Sender: FDA-Public Use
  Company Number: CH-BAYER-200614343GDS

PATIENT
  Age: 56 Year
  Sex: Male

DRUGS (12)
  1. SORAFENIB [Suspect]
     Indication: METASTATIC RENAL CELL CARCINOMA
     Dosage: TOTAL DAILY DOSE: 800 MG
     Route: 048
     Dates: start: 20060523, end: 20060621
  2. SORAFENIB [Suspect]
     Dosage: TOTAL DAILY DOSE: 800 MG
     Route: 048
     Dates: start: 20060719, end: 20060816
  3. SORAFENIB [Suspect]
     Dosage: TOTAL DAILY DOSE: 800 MG
     Route: 048
     Dates: start: 20060816, end: 20060908
  4. SORAFENIB [Suspect]
     Dosage: TOTAL DAILY DOSE: 800 MG
     Route: 048
     Dates: start: 20060621, end: 20060718
  5. SORAFENIB [Suspect]
     Dosage: TOTAL DAILY DOSE: 400 MG
     Route: 048
     Dates: start: 20060908, end: 20060917
  6. HYDROCORTONE [HYDROCORTISONE] [Concomitant]
     Indication: ADRENAL INSUFFICIENCY
     Route: 048
  7. NEXIUM [Concomitant]
     Indication: PROPHYLAXIS AGAINST GASTROINTESTINAL ULCER
     Route: 048
  8. ZOMETA [Concomitant]
     Indication: METASTASES TO BONE
     Route: 048
  9. MAGNESIOCARD [Concomitant]
     Indication: HYPOMAGNESAEMIA
     Route: 048
  10. CIPROFLOXACIN [Concomitant]
     Indication: DEVICE RELATED INFECTION
     Route: 065
     Dates: end: 20060801
  11. RIFAMPICIN [Concomitant]
     Indication: DEVICE RELATED INFECTION
     Route: 065
     Dates: end: 20060801
  12. TOREM [Concomitant]
     Indication: HYPERTENSION
     Route: 048

REACTIONS (3)
  - DISEASE PROGRESSION [None]
  - HYPOCALCAEMIA [None]
  - HYPOKALAEMIA [None]
